FAERS Safety Report 24749403 (Version 1)
Quarter: 2024Q4

REPORT INFORMATION
  Report Type: Spontaneous
  Country: DE (occurrence: DE)
  Receive Date: 20241218
  Receipt Date: 20241218
  Transmission Date: 20250115
  Serious: Yes (Death, Other)
  Sender: AMGEN
  Company Number: DE-AMGEN-DEUSP2024244933

PATIENT

DRUGS (9)
  1. PEGFILGRASTIM [Suspect]
     Active Substance: PEGFILGRASTIM
     Indication: Prophylaxis
     Dosage: 6 MILLIGRAM (D6) (FOUR 4-WEEK RAD INDUCTION CYCLES)
     Route: 065
  2. LENALIDOMIDE [Suspect]
     Active Substance: LENALIDOMIDE
     Indication: Haematopoietic stem cell mobilisation
     Dosage: 25 MILLIGRAM, QD (D 1-21),, (FOUR WEEK RAD INDUCTION CYCLES))
     Route: 065
  3. LENALIDOMIDE [Suspect]
     Active Substance: LENALIDOMIDE
     Dosage: 10 MG/DL (R-MAINT; FOR ONE YEAR) (FOUR WEEK RAD INDUCTION CYCLES)
     Route: 065
  4. ADRIAMYCIN [Suspect]
     Active Substance: DOXORUBICIN HYDROCHLORIDE
     Indication: Haematopoietic stem cell mobilisation
     Dosage: 9 MILLIGRAM/SQ. METER (D1 -4) (FOUR WEEK RAD INDUCTION CYCLES)
     Route: 040
  5. DEXAMETHASONE [Suspect]
     Active Substance: DEXAMETHASONE
     Indication: Haematopoietic stem cell mobilisation
     Dosage: 40 MILLIGRAM (D1-4 AND 17-20, FOUR  WEEK RAD INDUCTION CYCLES)
     Route: 048
  6. MELPHALAN [Concomitant]
     Active Substance: MELPHALAN
     Dosage: 200 MILLIGRAM/SQ. METER ((FOUR WEEK RAD INDUCTION CYCLES)
     Route: 065
  7. MELOXICAM [Concomitant]
     Active Substance: MELOXICAM
     Dosage: 5 MILLIGRAM, QD ((FOUR WEEK RAD INDUCTION CYCLES)
     Route: 065
  8. TREOSULFAN [Concomitant]
     Active Substance: TREOSULFAN
     Dosage: UNK ((FOUR WEEK RAD INDUCTION CYCLES)
     Route: 065
  9. FLUDARABINE [Concomitant]
     Active Substance: FLUDARABINE PHOSPHATE
     Dosage: UNK ((FOUR WEEK RAD INDUCTION CYCLES)
     Route: 065

REACTIONS (4)
  - Death [Fatal]
  - Febrile neutropenia [Unknown]
  - Embolism venous [Unknown]
  - Pneumonia [Unknown]
